FAERS Safety Report 8811779 (Version 1)
Quarter: 2012Q4

REPORT INFORMATION
  Report Type: 
  Country: US (occurrence: US)
  Receive Date: 20120927
  Receipt Date: 20120927
  Transmission Date: 20130627
  Serious: Yes (Hospitalization)
  Sender: FDA-Public Use
  Company Number: US-BAYER-2012-099866

PATIENT
  Age: 43 Year
  Sex: Female

DRUGS (10)
  1. YAZ [Suspect]
     Indication: DYSFUNCTIONAL UTERINE BLEEDING
  2. GIANVI [Suspect]
  3. AZASAN [Concomitant]
     Dosage: 100 mg, UNK
     Dates: start: 201202
  4. IMURAN [Concomitant]
  5. PENTASA [Concomitant]
     Dosage: UNK
     Dates: start: 201203
  6. PROTONIX [Concomitant]
     Dosage: 40 mg, UNK
  7. K-DUR [Concomitant]
     Dosage: 20 mEq, daily
  8. NORCO [Concomitant]
     Dosage: 5/325 mg
  9. PHENERGAN [Concomitant]
     Dosage: 12.5 mg, UNK
  10. MORPHINE [Concomitant]
     Indication: PAIN

REACTIONS (2)
  - Pulmonary embolism [None]
  - Deep vein thrombosis [None]
